FAERS Safety Report 17900471 (Version 1)
Quarter: 2020Q2

REPORT INFORMATION
  Report Type: Spontaneous
  Country: US (occurrence: US)
  Receive Date: 20200615
  Receipt Date: 20200615
  Transmission Date: 20200714
  Serious: No
  Sender: FDA-Public Use
  Company Number: None

PATIENT
  Age: 53 Year
  Sex: Male

DRUGS (1)
  1. IMATINIB 400MG TAB (X30) [Suspect]
     Active Substance: IMATINIB
     Dosage: TREATMENT START DATE: 14-AUG-2019?
     Route: 048
     Dates: end: 20190615

REACTIONS (2)
  - Disease progression [None]
  - Therapy change [None]

NARRATIVE: CASE EVENT DATE: 20200615
